FAERS Safety Report 12343165 (Version 2)
Quarter: 2016Q3

REPORT INFORMATION
  Report Type: Report from Study
  Country: FR (occurrence: FR)
  Receive Date: 20160506
  Receipt Date: 20160711
  Transmission Date: 20161109
  Serious: Yes (Hospitalization)
  Sender: FDA-Public Use
  Company Number: FR-PFIZER INC-2016086151

PATIENT
  Age: 40 Year
  Sex: Male
  Weight: 79 kg

DRUGS (5)
  1. XATRAL [Concomitant]
     Active Substance: ALFUZOSIN
     Dosage: 10 MG, UNK
  2. OXYNORM [Concomitant]
     Active Substance: OXYCODONE HYDROCHLORIDE
     Dosage: 10 MG EVERY 4 HOURS AS NEEDED
  3. PALBOCICLIB [Suspect]
     Active Substance: PALBOCICLIB
     Indication: GASTROINTESTINAL STROMAL TUMOUR
     Dosage: 125 MG, CYCLIC
     Route: 048
     Dates: start: 20160204, end: 20160224
  4. DUROGESIC [Concomitant]
     Active Substance: FENTANYL
     Dosage: 50 UG/H OVER 72 HOURS
     Route: 062
  5. PRIMPERAN [Concomitant]
     Active Substance: METOCLOPRAMIDE HYDROCHLORIDE
     Indication: NAUSEA
     Dosage: 1 HOUR BEFORE THE STUDY TREATMENT
     Route: 042
     Dates: start: 20160209

REACTIONS (2)
  - Pulmonary embolism [Recovered/Resolved]
  - Renal failure [Recovered/Resolved]

NARRATIVE: CASE EVENT DATE: 20160209
